FAERS Safety Report 9436453 (Version 1)
Quarter: 2013Q3

REPORT INFORMATION
  Report Type: Spontaneous
  Country: US (occurrence: US)
  Receive Date: 20130802
  Receipt Date: 20130802
  Transmission Date: 20140515
  Serious: Yes (Disabling, Other)
  Sender: FDA-Public Use
  Company Number: US-AMGEN-USASP2013052745

PATIENT
  Age: 62 Year
  Sex: Female

DRUGS (1)
  1. PROLIA [Suspect]
     Indication: OSTEOPOROSIS POSTMENOPAUSAL
     Route: 065

REACTIONS (14)
  - Disability [Unknown]
  - Joint injury [Unknown]
  - Cystitis interstitial [Unknown]
  - Nephrolithiasis [Not Recovered/Not Resolved]
  - Dry skin [Not Recovered/Not Resolved]
  - Irritable bowel syndrome [Unknown]
  - Skin haemorrhage [Unknown]
  - Bone loss [Unknown]
  - Device failure [Unknown]
  - Drug effect incomplete [Not Recovered/Not Resolved]
  - Pain [Unknown]
  - Hiatus hernia [Unknown]
  - Hair texture abnormal [Unknown]
  - Cystitis [Not Recovered/Not Resolved]
